FAERS Safety Report 4413034-8 (Version None)
Quarter: 2004Q3

REPORT INFORMATION
  Report Type: 
  Country: None (occurrence: None)
  Receive Date: 20040730
  Receipt Date: 20040730
  Transmission Date: 20050211
  Serious: Yes (Hospitalization)
  Sender: FDA-Public Use
  Company Number: None

PATIENT
  Sex: Male
  Weight: 75.7507 kg

DRUGS (9)
  1. METOPROLOL [Suspect]
     Indication: HYPERTENSION
     Dosage: 50 MG BID
     Dates: start: 20030903, end: 20040610
  2. BAG, URINARY DRAINAGE, BESIDE, CLOSED [Concomitant]
  3. CATHETER, EXTERNAL KENDALL [Concomitant]
  4. FLUOXETINE HCL [Concomitant]
  5. INCONTINENCE BRIEF KENDALL NED [Concomitant]
  6. METOPROLOL TARTRATE [Concomitant]
  7. SIMVASTATIN [Concomitant]
  8. TERAZOSIN HCL [Concomitant]
  9. WARFARIN SODIUM [Concomitant]

REACTIONS (2)
  - FALL [None]
  - SYNCOPE [None]
